FAERS Safety Report 7196452 (Version 3)
Quarter: 2013Q2

REPORT INFORMATION
  Report Type: Spontaneous
  Country: US (occurrence: US)
  Receive Date: 20091202
  Receipt Date: 20130429
  Transmission Date: 20140414
  Serious: Yes (Other)
  Sender: FDA-Public Use
  Company Number: PHEH2008US06157

PATIENT
  Sex: Female
  Weight: 163.5 kg

DRUGS (13)
  1. ESTRADERM TTS [Suspect]
  2. CLIMARA [Suspect]
  3. PAXIL [Concomitant]
  4. VIOXX [Concomitant]
  5. FEMARA [Concomitant]
     Dates: start: 20060818
  6. DEXAMETHAZONE-PIX [Concomitant]
  7. TAXOL [Concomitant]
  8. PROGESTERONE [Concomitant]
     Dosage: 5 MG, UNK
  9. DECADRON                                /CAN/ [Concomitant]
  10. PROVERA [Concomitant]
  11. FOSAMAX [Concomitant]
  12. BONIVA [Concomitant]
     Dosage: 150 MG, QMO
  13. CYCLOPHOSPHAMIDE [Concomitant]

REACTIONS (41)
  - Invasive ductal breast carcinoma [Unknown]
  - Emotional disorder [Unknown]
  - Physical disability [Unknown]
  - Scar [Unknown]
  - Breast mass [Unknown]
  - Metastases to lymph nodes [Unknown]
  - Fibrocystic breast disease [Unknown]
  - Breast pain [Unknown]
  - Cerebral ischaemia [Unknown]
  - Hypoaesthesia [Unknown]
  - VIIth nerve paralysis [Unknown]
  - Venous angioma of brain [Unknown]
  - Hemiparesis [Unknown]
  - Memory impairment [Unknown]
  - Pain [Unknown]
  - Neuropathy peripheral [Unknown]
  - Osteoarthritis [Unknown]
  - Depression [Unknown]
  - Haemorrhoids [Unknown]
  - Monoclonal gammopathy [Unknown]
  - Injury [Unknown]
  - Nausea [Unknown]
  - Vomiting [Unknown]
  - Constipation [Unknown]
  - Night sweats [Unknown]
  - Periorbital oedema [Unknown]
  - Arthralgia [Unknown]
  - Dyspnoea [Unknown]
  - Joint effusion [Unknown]
  - Joint swelling [Unknown]
  - Paraesthesia [Unknown]
  - Skin lesion [Unknown]
  - Diarrhoea [Unknown]
  - Dyspepsia [Unknown]
  - Anxiety [Unknown]
  - Hot flush [Unknown]
  - Skin reaction [Unknown]
  - Induration [Unknown]
  - Iron deficiency [Unknown]
  - Vitamin B12 deficiency [Unknown]
  - Bronchitis [Unknown]
